FAERS Safety Report 11389614 (Version 1)
Quarter: 2015Q3

REPORT INFORMATION
  Report Type: Spontaneous
  Country: US (occurrence: US)
  Receive Date: 20150817
  Receipt Date: 20150817
  Transmission Date: 20151125
  Serious: No
  Sender: FDA-Public Use
  Company Number: US-BAUSCH-BL-2015-013962

PATIENT
  Sex: Female

DRUGS (1)
  1. TARGRETIN [Suspect]
     Active Substance: BEXAROTENE
     Indication: SKIN DISORDER
     Route: 061
     Dates: start: 20150420, end: 20150429

REACTIONS (2)
  - Exposure during pregnancy [Unknown]
  - No adverse event [Unknown]
